FAERS Safety Report 5976419-4 (Version None)
Quarter: 2008Q4

REPORT INFORMATION
  Report Type: 
  Country: None (occurrence: None)
  Receive Date: 20081202
  Receipt Date: 20081118
  Transmission Date: 20090506
  Serious: Yes (Life-Threatening, Hospitalization, Disabling)
  Sender: FDA-Public Use
  Company Number: CZ-GENENTECH-269050

PATIENT
  Sex: Male

DRUGS (4)
  1. AVASTIN [Suspect]
     Indication: COLORECTAL CANCER
     Dosage: 5 MG/KG, Q2W
     Dates: start: 20080915, end: 20080917
  2. CAPECITABINE [Suspect]
     Indication: DRUG USE FOR UNKNOWN INDICATION
  3. OXALIPLATIN [Suspect]
     Indication: DRUG USE FOR UNKNOWN INDICATION
  4. FLUOROURACIL [Suspect]
     Indication: DRUG USE FOR UNKNOWN INDICATION

REACTIONS (4)
  - ARRHYTHMIA [None]
  - ATRIAL FIBRILLATION [None]
  - HYPOXIA [None]
  - MYOCARDIAL INFARCTION [None]
